FAERS Safety Report 10737116 (Version 1)
Quarter: 2015Q1

REPORT INFORMATION
  Report Type: Spontaneous
  Country: GB (occurrence: None)
  Receive Date: 20150122
  Receipt Date: 20150122
  Transmission Date: 20150721
  Serious: Yes (Other)
  Sender: FDA-Public Use
  Company Number: 2709746

PATIENT
  Sex: Female

DRUGS (2)
  1. MIFAMURTIDE [Suspect]
     Active Substance: MIFAMURTIDE
     Indication: PRODUCT USED FOR UNKNOWN INDICATION
     Dosage: 2 WEEK
  2. METHOTREXATE [Suspect]
     Active Substance: METHOTREXATE
     Indication: PRODUCT USED FOR UNKNOWN INDICATION
     Dosage: HIGH DOSE

REACTIONS (2)
  - Leukoencephalopathy [None]
  - Quadriplegia [None]

NARRATIVE: CASE EVENT DATE: 20150101
